FAERS Safety Report 6325946-9 (Version None)
Quarter: 2009Q3

REPORT INFORMATION
  Report Type: 
  Country: None (occurrence: None)
  Receive Date: 20090824
  Receipt Date: 20090820
  Transmission Date: 20100115
  Serious: Yes (Other)
  Sender: FDA-Public Use
  Company Number: CA-BRISTOL-MYERS SQUIBB COMPANY-14749972

PATIENT
  Sex: Male

DRUGS (1)
  1. SINEMET CR [Suspect]
     Dosage: 1 DOSAGE FORM = 200/50MG

REACTIONS (1)
  - PNEUMONIA ASPIRATION [None]
